FAERS Safety Report 9725600 (Version 1)
Quarter: 2013Q4

REPORT INFORMATION
  Report Type: Spontaneous
  Country: US (occurrence: None)
  Receive Date: 20131202
  Receipt Date: 20131202
  Transmission Date: 20140711
  Serious: No
  Sender: FDA-Public Use
  Company Number: None

PATIENT
  Age: 36 Year
  Sex: Female
  Weight: 97.52 kg

DRUGS (1)
  1. ZITHROMAX [Suspect]
     Indication: BRONCHITIS
     Dosage: 2 TABLETS THEN 1 TABLET ONCE DAILY TAKEN BY MOUTH
     Route: 048
     Dates: start: 20131125, end: 20131129

REACTIONS (11)
  - Mood swings [None]
  - Anxiety [None]
  - Depression [None]
  - Crying [None]
  - Anhedonia [None]
  - Insomnia [None]
  - Decreased appetite [None]
  - Flushing [None]
  - Chills [None]
  - Hot flush [None]
  - Diarrhoea [None]
